FAERS Safety Report 4560112-9 (Version None)
Quarter: 2005Q1

REPORT INFORMATION
  Report Type: 
  Country: None (occurrence: None)
  Receive Date: 20050125
  Receipt Date: 20050113
  Transmission Date: 20050727
  Serious: Yes (Other)
  Sender: FDA-Public Use
  Company Number: DE-BRISTOL-MYERS SQUIBB COMPANY-12832697

PATIENT
  Sex: Female

DRUGS (1)
  1. AMPHOTERICIN B FOR INJECTION [Suspect]
     Route: 042

REACTIONS (1)
  - ELECTROCARDIOGRAM QT PROLONGED [None]
